FAERS Safety Report 10779827 (Version 5)
Quarter: 2015Q3

REPORT INFORMATION
  Report Type: Spontaneous
  Country: AT (occurrence: AT)
  Receive Date: 20150210
  Receipt Date: 20150715
  Transmission Date: 20151125
  Serious: Yes (Hospitalization)
  Sender: FDA-Public Use
  Company Number: AT-ASTRAZENECA-2015SE10651

PATIENT
  Age: 20 Year
  Sex: Male

DRUGS (4)
  1. ZYPREXA [Suspect]
     Active Substance: OLANZAPINE
     Route: 048
     Dates: start: 201411, end: 20150128
  2. CISORDINOL DEPOT [Concomitant]
     Active Substance: ZUCLOPENTHIXOL
     Route: 030
     Dates: start: 20150110
  3. CISORDINOL DEPOT [Concomitant]
     Active Substance: ZUCLOPENTHIXOL
     Route: 030
     Dates: start: 201411
  4. SEROQUEL [Suspect]
     Active Substance: QUETIAPINE FUMARATE
     Indication: SEDATION
     Route: 048
     Dates: start: 201411, end: 20150128

REACTIONS (6)
  - Liver disorder [Unknown]
  - Pericarditis [Recovered/Resolved]
  - Off label use [Unknown]
  - Product use issue [Unknown]
  - Febrile infection [Unknown]
  - Myocarditis post infection [Recovered/Resolved]

NARRATIVE: CASE EVENT DATE: 201412
